FAERS Safety Report 9713735 (Version 2)
Quarter: 2013Q4

REPORT INFORMATION
  Report Type: Spontaneous
  Country: IT (occurrence: IT)
  Receive Date: 20131126
  Receipt Date: 20131126
  Transmission Date: 20140711
  Serious: Yes (Other)
  Sender: FDA-Public Use
  Company Number: IT-ABBVIE-13P-083-1105227-00

PATIENT
  Age: 78 Year
  Sex: Female

DRUGS (5)
  1. HUMIRA [Suspect]
     Indication: RHEUMATOID ARTHRITIS
     Route: 058
     Dates: start: 20060401, end: 20130507
  2. METHOTREXATE SODIUM SALT [Suspect]
     Indication: RHEUMATOID ARTHRITIS
     Dosage: 7.5 MG, WEEKLY
     Route: 030
     Dates: start: 19960101, end: 20130507
  3. URBASON [Concomitant]
     Indication: RHEUMATOID ARTHRITIS
  4. DIBASE [Concomitant]
     Indication: OSTEOPOROSIS
  5. ANTRA [Concomitant]
     Indication: PROPHYLAXIS AGAINST GASTROINTESTINAL ULCER

REACTIONS (3)
  - Nephrogenic anaemia [Unknown]
  - Cystitis klebsiella [Unknown]
  - Renal failure chronic [Unknown]
